FAERS Safety Report 9303418 (Version 2)
Quarter: 2013Q2

REPORT INFORMATION
  Report Type: Spontaneous
  Country: IT (occurrence: None)
  Receive Date: 20130516
  Receipt Date: 20130516
  Transmission Date: 20140414
  Serious: Yes (Other)
  Sender: FDA-Public Use
  Company Number: 2013AP005058

PATIENT
  Age: 71 Year
  Sex: Female

DRUGS (3)
  1. AMLODIPINE BESILATE [Suspect]
     Indication: BLOOD PRESSURE
     Route: 048
     Dates: start: 20130422, end: 20130422
  2. ENAPREN (ENALAPRIL MALEATE) [Concomitant]
  3. AMOXICILLIN AND CLAVULANATE POTASSIUM [Concomitant]

REACTIONS (2)
  - Headache [None]
  - Hypertensive crisis [None]
